FAERS Safety Report 18384233 (Version 1)
Quarter: 2020Q4

REPORT INFORMATION
  Report Type: Spontaneous
  Country: US (occurrence: US)
  Receive Date: 20201014
  Receipt Date: 20201014
  Transmission Date: 20210114
  Serious: No
  Sender: FDA-Public Use
  Company Number: US-INTRA-CELLULAR THERAPIES, INC.-2020ICT00097

PATIENT
  Age: 29 Year
  Sex: Female
  Weight: 140.59 kg

DRUGS (7)
  1. CAPLYTA [Suspect]
     Active Substance: LUMATEPERONE
     Indication: MAJOR DEPRESSION
     Dosage: 42 MG, 1X/DAY
     Route: 048
     Dates: start: 20200619, end: 2020
  2. SYNTHROID [Concomitant]
     Active Substance: LEVOTHYROXINE SODIUM
  3. FERROUS SULFATE. [Concomitant]
     Active Substance: FERROUS SULFATE
  4. CAPLYTA [Suspect]
     Active Substance: LUMATEPERONE
     Indication: POLYCYSTIC OVARIES
     Dosage: 21 MG (1/2 DOSE) DISSOLVED IN 2 OZ, 1X/DAY
     Route: 048
     Dates: start: 2020, end: 2020
  5. TRINTELLIX [Concomitant]
     Active Substance: VORTIOXETINE HYDROBROMIDE
  6. IMODIUM [Concomitant]
     Active Substance: LOPERAMIDE HYDROCHLORIDE
     Dosage: UNK, AS NEEDED
  7. OMEPRAZOLE. [Concomitant]
     Active Substance: OMEPRAZOLE

REACTIONS (4)
  - Weight decreased [Unknown]
  - Off label use [Recovered/Resolved]
  - Diarrhoea [Unknown]
  - Blood pressure increased [Unknown]

NARRATIVE: CASE EVENT DATE: 2020
